FAERS Safety Report 17084509 (Version 2)
Quarter: 2019Q4

REPORT INFORMATION
  Report Type: Spontaneous
  Country: US (occurrence: US)
  Receive Date: 20191127
  Receipt Date: 20191220
  Transmission Date: 20200122
  Serious: No
  Sender: FDA-Public Use
  Company Number: US-ELI_LILLY_AND_COMPANY-US201911010888

PATIENT
  Age: 55 Year
  Sex: Male

DRUGS (3)
  1. HUMULIN R U-500 [Suspect]
     Active Substance: INSULIN HUMAN
     Indication: PRODUCT USED FOR UNKNOWN INDICATION
     Dosage: 40 U, UNKNOWN
     Route: 058
     Dates: start: 201910
  2. HUMULIN R [Suspect]
     Active Substance: INSULIN HUMAN
     Dosage: 280 U, PRN
     Route: 065
  3. HUMULIN R [Suspect]
     Active Substance: INSULIN HUMAN
     Indication: PRODUCT USED FOR UNKNOWN INDICATION
     Dosage: 280 U, PRN
     Route: 065

REACTIONS (4)
  - Blood glucose increased [Recovering/Resolving]
  - Drug ineffective [Unknown]
  - Wrong technique in product usage process [Unknown]
  - Underdose [Unknown]
